FAERS Safety Report 17669500 (Version 1)
Quarter: 2020Q2

REPORT INFORMATION
  Report Type: Spontaneous
  Country: CA (occurrence: CA)
  Receive Date: 20200415
  Receipt Date: 20200415
  Transmission Date: 20200713
  Serious: Yes (Disabling, Other)
  Sender: FDA-Public Use
  Company Number: CA-TEVA-2020-CA-1221814

PATIENT
  Age: 10 Year
  Sex: Male
  Weight: 29 kg

DRUGS (7)
  1. MERCAPTOPURINE. [Concomitant]
     Active Substance: MERCAPTOPURINE
  2. VINCRISTINE SULFATE. [Suspect]
     Active Substance: VINCRISTINE SULFATE
     Indication: ACUTE LYMPHOCYTIC LEUKAEMIA
     Route: 042
  3. METHOTREXATE. [Concomitant]
     Active Substance: METHOTREXATE
  4. CYTARABINE. [Concomitant]
     Active Substance: CYTARABINE
     Route: 037
  5. DOXORUBICIN LIPOSOMAL [Concomitant]
     Active Substance: DOXORUBICIN
  6. E.COLI [Concomitant]
  7. PEGASPARGASE [Concomitant]
     Active Substance: PEGASPARGASE

REACTIONS (6)
  - Arthralgia [Unknown]
  - Neuropathy peripheral [Unknown]
  - Bone pain [Unknown]
  - Hypoaesthesia [Unknown]
  - Pain in extremity [Unknown]
  - Gait disturbance [Unknown]
